FAERS Safety Report 12668369 (Version 1)
Quarter: 2016Q3

REPORT INFORMATION
  Report Type: Spontaneous
  Country: JP (occurrence: JP)
  Receive Date: 20160819
  Receipt Date: 20160819
  Transmission Date: 20161109
  Serious: Yes (Hospitalization, Other)
  Sender: FDA-Public Use
  Company Number: JP-PRESTIUM-2016RN000373

PATIENT

DRUGS (5)
  1. AMPICILLIN SODIUM W/SULBACTAM SODIUM [Concomitant]
     Active Substance: AMPICILLIN SODIUM\SULBACTAM SODIUM
     Dosage: UNK
  2. CEFTRIAXONE SODIUM. [Concomitant]
     Active Substance: CEFTRIAXONE SODIUM
     Dosage: UNK
  3. VANCOMYCIN HYDROCHLORIDE. [Concomitant]
     Active Substance: VANCOMYCIN HYDROCHLORIDE
  4. ACICLOVIR [Suspect]
     Active Substance: ACYCLOVIR
     Route: 048
  5. MEROPENEM. [Concomitant]
     Active Substance: MEROPENEM
     Dosage: UNK

REACTIONS (5)
  - Disseminated intravascular coagulation [Unknown]
  - Cerebellar infarction [Unknown]
  - Disorientation [Unknown]
  - Computerised tomogram abnormal [Unknown]
  - Rhabdomyolysis [Unknown]
